FAERS Safety Report 7546780-8 (Version None)
Quarter: 2011Q2

REPORT INFORMATION
  Report Type: 
  Country: None (occurrence: None)
  Receive Date: 20110607
  Receipt Date: 20110314
  Transmission Date: 20111010
  Serious: Yes (Death)
  Sender: FDA-Public Use
  Company Number: 2006JP000047

PATIENT
  Age: 71 Year
  Sex: Male
  Weight: 62 kg

DRUGS (13)
  1. ISOSORBIDE DINITRATE [Concomitant]
  2. HERBESSOR R (DILTIAZEM HYDROCHLORIDE) [Concomitant]
  3. ALLOPURINOL [Concomitant]
  4. TICLOPIDINE HCL [Concomitant]
  5. TANATRIL ^ALGOL^ (IMIDAPRIL HYDROCHLORIDE) [Concomitant]
  6. ADOFEED (FLURBIPROFEN) [Concomitant]
  7. PROGRAF [Suspect]
     Indication: RHEUMATOID ARTHRITIS
     Dosage: 2 MG, UID/QD, ORAL
     Route: 048
     Dates: start: 20051119, end: 20060103
  8. ALLOPURINOL [Concomitant]
  9. ZANTAC [Concomitant]
  10. TORSEMIDE [Concomitant]
  11. TICLOPIDINE HCL [Concomitant]
  12. ISOSORBIDE MONONITRATE [Concomitant]
  13. PREDOHAN (PREDNISOLONE) [Concomitant]

REACTIONS (9)
  - CARDIAC ARREST [None]
  - CHOKING SENSATION [None]
  - CARDIAC FAILURE [None]
  - INTERSTITIAL LUNG DISEASE [None]
  - ACUTE RESPIRATORY FAILURE [None]
  - ATRIOVENTRICULAR BLOCK COMPLETE [None]
  - DIFFUSE ALVEOLAR DAMAGE [None]
  - TACHYCARDIA [None]
  - PALPITATIONS [None]
